FAERS Safety Report 4923892-6 (Version None)
Quarter: 2006Q1

REPORT INFORMATION
  Report Type: 
  Country: None (occurrence: None)
  Receive Date: 20060227
  Receipt Date: 20051007
  Transmission Date: 20060701
  Serious: Yes (Hospitalization, Disabling, Other)
  Sender: FDA-Public Use
  Company Number: US-MERCK-0510USA05667

PATIENT
  Age: 41 Year
  Sex: Female
  Weight: 109 kg

DRUGS (1)
  1. VIOXX [Suspect]
     Indication: ARTHRITIS
     Route: 048
     Dates: start: 20000613, end: 20030421

REACTIONS (13)
  - ASTHMA [None]
  - BURSITIS [None]
  - CEREBROVASCULAR ACCIDENT [None]
  - DIABETES MELLITUS NON-INSULIN-DEPENDENT [None]
  - EAR PAIN [None]
  - FACIAL PALSY [None]
  - HIATUS HERNIA [None]
  - HYPERKERATOSIS [None]
  - HYPERTENSION [None]
  - HYPOTHYROIDISM [None]
  - MILD MENTAL RETARDATION [None]
  - PANIC DISORDER WITH AGORAPHOBIA [None]
  - VISUAL ACUITY REDUCED [None]
